FAERS Safety Report 22613220 (Version 2)
Quarter: 2023Q2

REPORT INFORMATION
  Report Type: Spontaneous
  Country: US (occurrence: US)
  Receive Date: 20230618
  Receipt Date: 20230626
  Transmission Date: 20230722
  Serious: Yes (Hospitalization)
  Sender: FDA-Public Use
  Company Number: US-TEVA-2023-US-2895949

PATIENT
  Age: 40 Year
  Sex: Male

DRUGS (12)
  1. BLEOMYCIN [Suspect]
     Active Substance: BLEOMYCIN SULFATE
     Indication: Hodgkin^s disease
     Route: 065
  2. DOXORUBICIN [Suspect]
     Active Substance: DOXORUBICIN
     Indication: Hodgkin^s disease
     Route: 065
  3. DACARBAZINE [Suspect]
     Active Substance: DACARBAZINE
     Indication: Hodgkin^s disease
     Route: 065
  4. TRETINOIN [Suspect]
     Active Substance: TRETINOIN
     Indication: Chronic myeloid leukaemia
     Dosage: 45 MG/SQUARE METER TWICE DAILY.
     Route: 048
  5. VINBLASTINE [Suspect]
     Active Substance: VINBLASTINE
     Indication: Hodgkin^s disease
     Route: 065
  6. DASATINIB [Suspect]
     Active Substance: DASATINIB
     Indication: Chronic myeloid leukaemia
     Dosage: 100 MILLIGRAM DAILY; ONCE A DAY
     Route: 065
  7. DASATINIB [Suspect]
     Active Substance: DASATINIB
     Dosage: 60 MILLIGRAM DAILY; ONCE A DAY
     Route: 065
  8. NILOTINIB [Suspect]
     Active Substance: NILOTINIB
     Indication: Chronic myeloid leukaemia
     Dosage: 300 MILLIGRAM DAILY; ONCE A DAY
     Route: 065
  9. NILOTINIB [Suspect]
     Active Substance: NILOTINIB
     Dosage: 600 MILLIGRAM DAILY; 300 MG TWICE DAILY
     Route: 065
  10. IMATINIB [Concomitant]
     Active Substance: IMATINIB
     Indication: Chronic myeloid leukaemia
     Dosage: 400 MILLIGRAM DAILY; ONCE A DAY
     Route: 065
  11. IMATINIB [Concomitant]
     Active Substance: IMATINIB
     Dosage: 300 MILLIGRAM DAILY; ONCE A DAY
     Route: 065
  12. ARSENIC TRIOXIDE [Concomitant]
     Active Substance: ARSENIC TRIOXIDE
     Indication: Chronic myeloid leukaemia
     Route: 042

REACTIONS (9)
  - Chromosomal mutation [Recovered/Resolved]
  - Blast cell crisis [Unknown]
  - Pulmonary oedema [Unknown]
  - Pleural effusion [Unknown]
  - Pericardial effusion [Unknown]
  - Cytopenia [Unknown]
  - Headache [Unknown]
  - Rash [Unknown]
  - Dizziness [Unknown]
